FAERS Safety Report 7331458-6 (Version None)
Quarter: 2011Q1

REPORT INFORMATION
  Report Type: 
  Country: None (occurrence: None)
  Receive Date: 20110228
  Receipt Date: 20110228
  Transmission Date: 20110831
  Serious: Yes (Other)
  Sender: FDA-Public Use
  Company Number: None

PATIENT
  Sex: Male
  Weight: 75.7507 kg

DRUGS (1)
  1. LISINOPRIL [Suspect]
     Indication: BLOOD PRESSURE
     Dosage: 10 MG 1 PER DAY
     Dates: start: 20110129

REACTIONS (3)
  - BLOOD PRESSURE DECREASED [None]
  - ABDOMINAL DISCOMFORT [None]
  - SYNCOPE [None]
